FAERS Safety Report 19583308 (Version 1)
Quarter: 2021Q3

REPORT INFORMATION
  Report Type: Spontaneous
  Country: CA (occurrence: CA)
  Receive Date: 20210720
  Receipt Date: 20210720
  Transmission Date: 20211014
  Serious: Yes (Other)
  Sender: FDA-Public Use
  Company Number: CA-SA-2021SA100440

PATIENT
  Age: 33 Year
  Sex: Male

DRUGS (19)
  1. DEXAMETHASONE SALT NOT SPECIFIED [Suspect]
     Active Substance: DEXAMETHASONE
     Dosage: 6 MG, QD, ON DAY 62
  2. CYCLOPHOSPHAMIDE. [Suspect]
     Active Substance: CYCLOPHOSPHAMIDE
     Indication: HAEMOPHAGOCYTIC LYMPHOHISTIOCYTOSIS
     Dosage: ONE CYCLE
  3. PREDNISONE. [Suspect]
     Active Substance: PREDNISONE
     Dosage: GRADUAL TAPER OVER 3 MONTHS
  4. ETOPOSIDE. [Suspect]
     Active Substance: ETOPOSIDE
     Dosage: 75 MG/M2 ON DAY 20
  5. METHOTREXATE. [Suspect]
     Active Substance: METHOTREXATE
     Indication: HAEMOPHAGOCYTIC LYMPHOHISTIOCYTOSIS
     Dosage: LOW DOSE
     Route: 048
  6. ETOPOSIDE. [Suspect]
     Active Substance: ETOPOSIDE
     Dosage: 150 MG/M2, ON DAY ?20 TO ?3
  7. RUXOLITINIB [Suspect]
     Active Substance: RUXOLITINIB
     Indication: HAEMOPHAGOCYTIC LYMPHOHISTIOCYTOSIS
     Dosage: INTERRUPTED ON DAY 5
  8. ALEMTUZUMAB [Suspect]
     Active Substance: ALEMTUZUMAB
     Indication: HAEMOPHAGOCYTIC LYMPHOHISTIOCYTOSIS
  9. VINCRISTINE SULFATE. [Suspect]
     Active Substance: VINCRISTINE SULFATE
     Indication: HAEMOPHAGOCYTIC LYMPHOHISTIOCYTOSIS
     Dosage: ONE CYCLE
  10. RUXOLITINIB [Suspect]
     Active Substance: RUXOLITINIB
     Dosage: RESUMED ON DAY 20 WITH DOSE REDUCED
  11. IMMUNOGLOBULIN I.V [Concomitant]
     Active Substance: HUMAN IMMUNOGLOBULIN G
     Indication: HAEMOPHAGOCYTIC LYMPHOHISTIOCYTOSIS
     Route: 042
  12. ETOPOSIDE. [Suspect]
     Active Substance: ETOPOSIDE
     Dosage: 75 MG/M2 WEEKLY UNTILL DAY 76
  13. PREDNISONE. [Suspect]
     Active Substance: PREDNISONE
     Indication: HAEMOPHAGOCYTIC LYMPHOHISTIOCYTOSIS
     Dosage: ONE CYCLE
  14. ETOPOSIDE. [Suspect]
     Active Substance: ETOPOSIDE
     Indication: HAEMOPHAGOCYTIC LYMPHOHISTIOCYTOSIS
     Dosage: 150 MG/M2, ON DAY ?26 TO ?23
  15. DEXAMETHASONE SALT NOT SPECIFIED [Suspect]
     Active Substance: DEXAMETHASONE
     Indication: HAEMOPHAGOCYTIC LYMPHOHISTIOCYTOSIS
     Dosage: 16 MG, QD, STARTED ON DAY ?26
  16. DEXAMETHASONE SALT NOT SPECIFIED [Suspect]
     Active Substance: DEXAMETHASONE
     Dosage: 6 MG, QD, ON DAY 187
  17. DOXORUBICIN [Suspect]
     Active Substance: DOXORUBICIN
     Indication: HAEMOPHAGOCYTIC LYMPHOHISTIOCYTOSIS
     Dosage: ONE CYCLE
  18. METHOTREXATE. [Suspect]
     Active Substance: METHOTREXATE
     Indication: PERIPHERAL T-CELL LYMPHOMA UNSPECIFIED
  19. DEXAMETHASONE SALT NOT SPECIFIED [Suspect]
     Active Substance: DEXAMETHASONE
     Dosage: 8 MG, QD,ON DAY 20

REACTIONS (8)
  - Pneumocystis jirovecii pneumonia [Unknown]
  - Pathogen resistance [Unknown]
  - Pneumonitis [Unknown]
  - Off label use [Unknown]
  - Enterococcal bacteraemia [Unknown]
  - Cytomegalovirus infection reactivation [Unknown]
  - Retroperitoneal haematoma [Unknown]
  - Enterococcal infection [Unknown]
